FAERS Safety Report 5349252-4 (Version None)
Quarter: 2007Q2

REPORT INFORMATION
  Report Type: 
  Country: None (occurrence: None)
  Receive Date: 20070607
  Receipt Date: 20070529
  Transmission Date: 20071010
  Serious: Yes (Life-Threatening)
  Sender: FDA-Public Use
  Company Number: GB-ASTRAZENECA-2007GB01107

PATIENT
  Age: 43 Year
  Sex: Male

DRUGS (2)
  1. LIDOCAINE [Suspect]
     Indication: LOCAL ANAESTHESIA
     Route: 058
     Dates: start: 20070314, end: 20070314
  2. LIDOCAINE [Suspect]
     Indication: SURGERY
     Route: 058
     Dates: start: 20070314, end: 20070314

REACTIONS (9)
  - COLD SWEAT [None]
  - DIZZINESS [None]
  - FEELING COLD [None]
  - HEART RATE DECREASED [None]
  - HYPERHIDROSIS [None]
  - HYPOTENSION [None]
  - PALLOR [None]
  - PULSE ABSENT [None]
  - RESTLESSNESS [None]
